FAERS Safety Report 6272452-6 (Version None)
Quarter: 2009Q3

REPORT INFORMATION
  Report Type: 
  Country: None (occurrence: None)
  Receive Date: 20090713
  Receipt Date: 20090413
  Transmission Date: 20100115
  Serious: Yes (Hospitalization)
  Sender: FDA-Public Use
  Company Number: 627122

PATIENT
  Age: 85 Year
  Sex: Female

DRUGS (1)
  1. BONIVA [Suspect]
     Indication: BONE DISORDER
     Dosage: 150 MG
     Dates: start: 20090115, end: 20090215

REACTIONS (4)
  - ABDOMINAL PAIN UPPER [None]
  - ARTHRALGIA [None]
  - GINGIVAL PAIN [None]
  - MUSCULOSKELETAL PAIN [None]
